FAERS Safety Report 17750382 (Version 4)
Quarter: 2020Q4

REPORT INFORMATION
  Report Type: Spontaneous
  Country: US (occurrence: US)
  Receive Date: 20200506
  Receipt Date: 20201124
  Transmission Date: 20210113
  Serious: Yes (Other)
  Sender: FDA-Public Use
  Company Number: US-PFIZER INC-2020154846

PATIENT
  Age: 75 Year
  Sex: Female

DRUGS (2)
  1. LYRICA [Suspect]
     Active Substance: PREGABALIN
     Dosage: 50 MG (PREGOBLINE)- TAKE ONE IN MORNING; 75 MG (PREGOBLINE)- TAKE ONE BEFORE BEDTIME)
     Route: 048
  2. LYRICA [Suspect]
     Active Substance: PREGABALIN
     Dosage: 50 MG ONCE A DAY AND 75MG AT NIGHT
     Route: 048

REACTIONS (2)
  - Visual impairment [Unknown]
  - Diabetes mellitus [Unknown]
